FAERS Safety Report 4299428-2 (Version None)
Quarter: 2004Q1

REPORT INFORMATION
  Report Type: 
  Country: None (occurrence: None)
  Receive Date: 20040217
  Receipt Date: 20040202
  Transmission Date: 20041129
  Serious: Yes (Hospitalization, Disabling)
  Sender: FDA-Public Use
  Company Number: 2004SE00212

PATIENT
  Age: 66 Year
  Sex: Male

DRUGS (5)
  1. ROSUVASTATIN [Suspect]
     Indication: HYPERCHOLESTEROLAEMIA
     Dosage: 10 MG QD PO
     Route: 048
     Dates: start: 20020228, end: 20031022
  2. ROSUVASTATIN [Suspect]
     Indication: HYPERCHOLESTEROLAEMIA
     Dosage: 10 MG QD PO
     Route: 048
     Dates: start: 20031110, end: 20031203
  3. ROSUVASTATIN [Suspect]
     Indication: HYPERCHOLESTEROLAEMIA
     Dosage: 10 MG QD PO
     Route: 048
     Dates: start: 20031216, end: 20040113
  4. ATACAND [Concomitant]
  5. ALBYL-E [Concomitant]

REACTIONS (9)
  - CITROBACTER INFECTION [None]
  - CULTURE URINE POSITIVE [None]
  - DIFFICULTY IN WALKING [None]
  - EPIDIDYMITIS [None]
  - ESCHERICHIA INFECTION [None]
  - FATIGUE [None]
  - MYELOPATHY [None]
  - SENSORY DISTURBANCE [None]
  - URINARY RETENTION [None]
